FAERS Safety Report 7810403-0 (Version None)
Quarter: 2011Q4

REPORT INFORMATION
  Report Type: 
  Country: None (occurrence: None)
  Receive Date: 20111012
  Receipt Date: 20110927
  Transmission Date: 20120403
  Serious: Yes (Other)
  Sender: FDA-Public Use
  Company Number: AU-ROCHE-1001165

PATIENT

DRUGS (2)
  1. PEG-INTERFERON ALFA 2A [Suspect]
     Indication: HEPATITIS C
  2. COPEGUS [Suspect]
     Indication: HEPATITIS C

REACTIONS (5)
  - RENAL ABSCESS [None]
  - DELUSION [None]
  - NEUTROPENIA [None]
  - THROMBOCYTOPENIA [None]
  - DEEP VEIN THROMBOSIS [None]
